FAERS Safety Report 14205456 (Version 1)
Quarter: 2017Q4

REPORT INFORMATION
  Report Type: Spontaneous
  Country: IL (occurrence: IL)
  Receive Date: 20171120
  Receipt Date: 20171120
  Transmission Date: 20180321
  Serious: Yes (Death, Life-Threatening, Hospitalization, Other)
  Sender: FDA-Public Use
  Company Number: IL-NEOS THERAPEUTICS, LP-2017NEO00104

PATIENT
  Age: 23 Year
  Sex: Male

DRUGS (2)
  1. AMPHETAMINE [Suspect]
     Active Substance: AMPHETAMINE
     Route: 065
  2. ALCOHOL. [Suspect]
     Active Substance: ALCOHOL
     Route: 048

REACTIONS (9)
  - Hyponatraemia [Unknown]
  - Metabolic acidosis [Unknown]
  - Brain herniation [Unknown]
  - Ventricular dysfunction [Recovered/Resolved]
  - Brain death [Fatal]
  - Respiratory acidosis [Unknown]
  - Brain oedema [Unknown]
  - Respiratory failure [Unknown]
  - Overdose [Not Recovered/Not Resolved]
